FAERS Safety Report 20801496 (Version 2)
Quarter: 2022Q3

REPORT INFORMATION
  Report Type: Spontaneous
  Country: PL (occurrence: None)
  Receive Date: 20220509
  Receipt Date: 20220719
  Transmission Date: 20221026
  Serious: Yes (Hospitalization)
  Sender: FDA-Public Use
  Company Number: PL-Merck Healthcare KGaA-9300224

PATIENT
  Age: 25 Year
  Sex: Male

DRUGS (2)
  1. MAVENCLAD [Suspect]
     Active Substance: CLADRIBINE
     Indication: Multiple sclerosis
     Dosage: YEAR ONE THERAPY
  2. MAVENCLAD [Suspect]
     Active Substance: CLADRIBINE
     Dosage: YEAR TWO THERAPY

REACTIONS (5)
  - Cerebellar syndrome [Unknown]
  - Multiple sclerosis relapse [Unknown]
  - Quadriplegia [Unknown]
  - General physical health deterioration [Unknown]
  - Depression [Unknown]
